FAERS Safety Report 8421768-3 (Version None)
Quarter: 2012Q2

REPORT INFORMATION
  Report Type: 
  Country: None (occurrence: None)
  Receive Date: 20120323
  Receipt Date: 20111215
  Transmission Date: 20120825
  Serious: Yes (Other)
  Sender: FDA-Public Use
  Company Number: 163-21880-11122361

PATIENT
  Age: 61 Year
  Sex: Female
  Weight: 106.5953 kg

DRUGS (15)
  1. REVLIMID [Suspect]
     Indication: MULTIPLE MYELOMA
     Dosage: 10 MG, 21/7, PO
     Route: 048
     Dates: start: 20110610, end: 20111201
  2. ZYRTEC [Concomitant]
  3. LASIX [Concomitant]
  4. PHENERGAN HCL [Concomitant]
  5. ZOMETA [Concomitant]
  6. LYRICA [Concomitant]
  7. OMEPRAZOLE [Concomitant]
  8. TRAMADOL HCL [Concomitant]
  9. AMLODIPINE [Concomitant]
  10. HYDROCHLOROTHIAZIDE-LOSARTAN (HYDROCHLOROTHIAZIDE W/LOSARTAN) [Concomitant]
  11. NEURONTIN [Concomitant]
  12. OXYCONTIN [Concomitant]
  13. ZANAFLEX [Concomitant]
  14. KLOR-CON [Concomitant]
  15. PERCOCET [Concomitant]

REACTIONS (1)
  - THROMBOSIS [None]
